FAERS Safety Report 23676957 (Version 2)
Quarter: 2024Q2

REPORT INFORMATION
  Report Type: Spontaneous
  Country: US (occurrence: US)
  Receive Date: 20240327
  Receipt Date: 20240403
  Transmission Date: 20240716
  Serious: No
  Sender: FDA-Public Use
  Company Number: US-BIOVITRUM-2024-US-004808

PATIENT
  Age: 50 Year
  Sex: Male

DRUGS (1)
  1. VONJO [Suspect]
     Active Substance: PACRITINIB
     Indication: Thrombocytopenia
     Dosage: TWICE A DAY
     Route: 048
     Dates: start: 20240324

REACTIONS (3)
  - Dry mouth [Unknown]
  - Lip dry [Unknown]
  - Off label use [Not Recovered/Not Resolved]
